FAERS Safety Report 6697941-1 (Version None)
Quarter: 2010Q2

REPORT INFORMATION
  Report Type: 
  Country: None (occurrence: None)
  Receive Date: 20100427
  Receipt Date: 20100420
  Transmission Date: 20101027
  Serious: No
  Sender: FDA-Public Use
  Company Number: US-BIOGENIDEC-2010BI013582

PATIENT
  Age: 45 Year
  Sex: Male

DRUGS (1)
  1. TYSABRI [Suspect]
     Indication: MULTIPLE SCLEROSIS
     Route: 042
     Dates: start: 20080930

REACTIONS (6)
  - BURNING SENSATION [None]
  - DISTURBANCE IN ATTENTION [None]
  - GENERAL SYMPTOM [None]
  - HYPOAESTHESIA [None]
  - NEURALGIA [None]
  - PAIN IN EXTREMITY [None]
